FAERS Safety Report 25664870 (Version 1)
Quarter: 2025Q3

REPORT INFORMATION
  Report Type: Spontaneous
  Country: IN (occurrence: IN)
  Receive Date: 20250811
  Receipt Date: 20250811
  Transmission Date: 20251020
  Serious: Yes (Other)
  Sender: MYLAN
  Company Number: IN-MYLANLABS-2025M1066861

PATIENT
  Age: 57 Year
  Sex: Male

DRUGS (3)
  1. TICAGRELOR [Interacting]
     Active Substance: TICAGRELOR
     Indication: Coronary artery disease
  2. ROSUVASTATIN [Interacting]
     Active Substance: ROSUVASTATIN
     Indication: Coronary artery disease
  3. DAPAGLIFLOZIN [Interacting]
     Active Substance: DAPAGLIFLOZIN
     Indication: Type 2 diabetes mellitus

REACTIONS (5)
  - Myopathy toxic [Recovered/Resolved]
  - Rhabdomyolysis [Recovered/Resolved]
  - Drug interaction [Recovered/Resolved]
  - Acute kidney injury [Recovered/Resolved]
  - Metabolic acidosis [Recovered/Resolved]
